FAERS Safety Report 16334199 (Version 1)
Quarter: 2019Q2

REPORT INFORMATION
  Report Type: Spontaneous
  Country: JP (occurrence: JP)
  Receive Date: 20190520
  Receipt Date: 20190520
  Transmission Date: 20190711
  Serious: Yes (Hospitalization)
  Sender: FDA-Public Use
  Company Number: JP-PFIZER INC-2019204271

PATIENT

DRUGS (3)
  1. CABASER 0.25MG [Suspect]
     Active Substance: CABERGOLINE
     Dosage: 0.5 MG, WEEKLY(ON WEDNESDAY)
     Route: 048
  2. CABASER 1.0MG [Suspect]
     Active Substance: CABERGOLINE
     Dosage: 1 MG, WEEKLY (ON SUNDAY)
     Route: 048
  3. CABASER 0.25MG [Suspect]
     Active Substance: CABERGOLINE
     Dosage: 0.25 MG, WEEKLY
     Route: 048

REACTIONS (1)
  - Lip and/or oral cavity cancer [Unknown]
